FAERS Safety Report 8289925-7 (Version None)
Quarter: 2012Q2

REPORT INFORMATION
  Report Type: 
  Country: None (occurrence: None)
  Receive Date: 20120417
  Receipt Date: 20120410
  Transmission Date: 20120825
  Serious: Yes (Death)
  Sender: FDA-Public Use
  Company Number: US-CELGENEUS-163-21880-12041147

PATIENT
  Sex: Male

DRUGS (8)
  1. ASPIRIN [Concomitant]
     Dosage: 325 MILLIGRAM
     Route: 048
  2. PRAVASTATIN [Concomitant]
     Dosage: 20 MILLIGRAM
     Route: 048
  3. CARBIDOPA AND LEVODOPA [Concomitant]
     Dosage: 25-100MG
     Route: 048
  4. AMLODIPINE [Concomitant]
     Dosage: 10 MILLIGRAM
     Route: 048
  5. SPIRONOLACT [Concomitant]
     Dosage: 100 MILLIGRAM
     Route: 048
  6. SELEGILINE [Concomitant]
     Dosage: 5 MILLIGRAM
     Route: 048
  7. ACCUPRIL [Concomitant]
     Dosage: 10 MILLIGRAM
     Route: 048
  8. REVLIMID [Suspect]
     Indication: MULTIPLE MYELOMA
     Dosage: 25 MILLIGRAM
     Route: 048
     Dates: start: 20110603

REACTIONS (1)
  - DEATH [None]
